FAERS Safety Report 7562408-5 (Version None)
Quarter: 2011Q2

REPORT INFORMATION
  Report Type: 
  Country: None (occurrence: None)
  Receive Date: 20110614
  Receipt Date: 20110531
  Transmission Date: 20111010
  Serious: Yes (Life-Threatening, Hospitalization)
  Sender: FDA-Public Use
  Company Number: 2011MA006592

PATIENT
  Age: 54 Year
  Sex: Female

DRUGS (2)
  1. HALOPERIDOL LACTATE [Suspect]
     Indication: AGITATION
     Dosage: 5 MG;QH;IM
     Route: 030
  2. BENZTROPINE MESYLATE [Concomitant]

REACTIONS (21)
  - NEUROLEPTIC MALIGNANT SYNDROME [None]
  - AGGRESSION [None]
  - HYPERHIDROSIS [None]
  - SALIVARY HYPERSECRETION [None]
  - COGWHEEL RIGIDITY [None]
  - INCOHERENT [None]
  - DISORIENTATION [None]
  - ABNORMAL BEHAVIOUR [None]
  - GRANDIOSITY [None]
  - BLOOD CREATINE PHOSPHOKINASE INCREASED [None]
  - FEAR [None]
  - CONFUSIONAL STATE [None]
  - SPEECH DISORDER [None]
  - PERSECUTORY DELUSION [None]
  - MENTAL STATUS CHANGES [None]
  - AGITATION [None]
  - PSYCHOTIC DISORDER [None]
  - RESPIRATORY RATE INCREASED [None]
  - HYPERTONIA [None]
  - MOANING [None]
  - HEART RATE INCREASED [None]
